FAERS Safety Report 12180829 (Version 1)
Quarter: 2016Q1

REPORT INFORMATION
  Report Type: Spontaneous
  Country: US (occurrence: US)
  Receive Date: 20160315
  Receipt Date: 20160315
  Transmission Date: 20160526
  Serious: Yes (Death)
  Sender: FDA-Public Use
  Company Number: US-PFIZER INC-2016148470

PATIENT
  Age: 82 Year
  Sex: Male

DRUGS (1)
  1. INLYTA [Suspect]
     Active Substance: AXITINIB
     Indication: RENAL CANCER
     Dosage: 5MG TABLETS, TWICE A DAY
     Route: 048
     Dates: start: 201511, end: 201601

REACTIONS (8)
  - Decreased appetite [Not Recovered/Not Resolved]
  - Malaise [Unknown]
  - Abnormal faeces [Not Recovered/Not Resolved]
  - Renal cancer [Fatal]
  - Weight decreased [Not Recovered/Not Resolved]
  - Change of bowel habit [Unknown]
  - Diarrhoea [Unknown]
  - Disease progression [Fatal]

NARRATIVE: CASE EVENT DATE: 201512
